FAERS Safety Report 14492508 (Version 4)
Quarter: 2018Q1

REPORT INFORMATION
  Report Type: Spontaneous
  Country: US (occurrence: US)
  Receive Date: 20180206
  Receipt Date: 20180323
  Transmission Date: 20180509
  Serious: Yes (Disabling)
  Sender: FDA-Public Use
  Company Number: US-GALDERMA-US18001491

PATIENT
  Age: 55 Year
  Sex: Female

DRUGS (7)
  1. DOXYCYCLINE. [Suspect]
     Active Substance: DOXYCYCLINE
     Indication: ACNE
     Dates: start: 2010
  2. TRIAMCINOLONE [Concomitant]
     Active Substance: TRIAMCINOLONE
     Route: 061
  3. CETAPHIL NOS [Concomitant]
     Active Substance: AVOBENZONE\OCTOCRYLENE OR TRICLOSAN
     Indication: PRODUCT USED FOR UNKNOWN INDICATION
  4. MIRVASO [Suspect]
     Active Substance: BRIMONIDINE TARTRATE
  5. TRIAMCINOLONE [Concomitant]
     Active Substance: TRIAMCINOLONE
     Indication: PRODUCT USED FOR UNKNOWN INDICATION
     Route: 061
     Dates: start: 201801, end: 201802
  6. CETAPHIL [Concomitant]
     Active Substance: AVOBENZONE\OCTOCRYLENE\TRICLOSAN
     Indication: PRODUCT USED FOR UNKNOWN INDICATION
  7. MIRVASO [Suspect]
     Active Substance: BRIMONIDINE TARTRATE
     Indication: ROSACEA
     Dosage: 0.33%
     Route: 061
     Dates: start: 201710, end: 20180130

REACTIONS (16)
  - Eye swelling [Recovered/Resolved]
  - Flushing [Recovering/Resolving]
  - Inappropriate schedule of drug administration [Recovered/Resolved]
  - Skin burning sensation [Not Recovered/Not Resolved]
  - Swelling face [Recovering/Resolving]
  - Product use in unapproved indication [Recovered/Resolved]
  - Rash papular [Recovering/Resolving]
  - Impaired work ability [Unknown]
  - Eyelids pruritus [Recovered/Resolved]
  - Rosacea [Recovered/Resolved]
  - Blister [Recovering/Resolving]
  - Overdose [Recovered/Resolved]
  - Eye pruritus [Recovered/Resolved]
  - Throat irritation [Recovering/Resolving]
  - Feeling hot [Recovering/Resolving]
  - Eyelid oedema [Recovered/Resolved]

NARRATIVE: CASE EVENT DATE: 20180104
